FAERS Safety Report 23059150 (Version 7)
Quarter: 2023Q4

REPORT INFORMATION
  Report Type: Spontaneous
  Country: US (occurrence: US)
  Receive Date: 20231012
  Receipt Date: 20231211
  Transmission Date: 20240110
  Serious: No
  Sender: FDA-Public Use
  Company Number: US-PFIZER INC-202300308047

PATIENT
  Age: 11 Year
  Sex: Male
  Weight: 23 kg

DRUGS (5)
  1. GENOTROPIN [Suspect]
     Active Substance: SOMATROPIN
     Indication: Growth hormone deficiency
     Dosage: SIX TIMES A WEEK ADMINISTERED IN STOMACH, THIGH, OR BUTTOCKS
     Dates: start: 202307
  2. GENOTROPIN [Suspect]
     Active Substance: SOMATROPIN
     Dosage: A WEK AS DIRECTED
     Route: 058
  3. GENOTROPIN [Suspect]
     Active Substance: SOMATROPIN
     Dosage: UNK
  4. GENOTROPIN [Suspect]
     Active Substance: SOMATROPIN
     Dosage: UNK
  5. GENOTROPIN [Suspect]
     Active Substance: SOMATROPIN
     Dosage: UNK

REACTIONS (2)
  - Drug dose omission by device [Unknown]
  - Device leakage [Unknown]
